FAERS Safety Report 13546407 (Version 1)
Quarter: 2017Q2

REPORT INFORMATION
  Report Type: Spontaneous
  Country: IL (occurrence: IL)
  Receive Date: 20170515
  Receipt Date: 20170515
  Transmission Date: 20170830
  Serious: Yes (Other)
  Sender: FDA-Public Use
  Company Number: IL-BAXTER-2017BAX020111

PATIENT
  Age: 11 Year
  Sex: Female

DRUGS (24)
  1. SOLUVIT [Suspect]
     Active Substance: VITAMINS
     Indication: PARENTERAL NUTRITION
     Dosage: THROUGH PICC
     Route: 042
  2. CALCIUM GLUCONATE. [Suspect]
     Active Substance: CALCIUM GLUCONATE
     Dosage: 10% W/V; THROUGH PICC
     Route: 042
     Dates: start: 20170427
  3. POTASSIUM CHLORIDE. [Suspect]
     Active Substance: POTASSIUM CHLORIDE
     Indication: PARENTERAL NUTRITION
     Dosage: POTASSIUM CHLORIDE 500 ML, THROUGH PICC
     Route: 042
  4. CLINOLEIC  20% [Suspect]
     Active Substance: OLIVE OIL\SOYBEAN OIL
     Indication: PARENTERAL NUTRITION
     Dosage: THROUGH PICC
     Route: 042
  5. SYNTHAMIN [Suspect]
     Active Substance: AMINO ACIDS
     Indication: PARENTERAL NUTRITION
     Dosage: THROUGH PICC, SYNTHAMIN W/O ELE 10% 3L
     Route: 042
  6. DEXTROSE. [Suspect]
     Active Substance: DEXTROSE
     Dosage: 55% W/V; THROUGH PICC
     Route: 042
     Dates: start: 20170427
  7. CALCIUM GLUCONATE. [Suspect]
     Active Substance: CALCIUM GLUCONATE
     Indication: PARENTERAL NUTRITION
     Dosage: 10% W/V; THROUGH PICC
     Route: 042
  8. STERILE WATER FOR INJECTION [Suspect]
     Active Substance: WATER
     Dosage: WATER FOR INJECTION 3 L, THROUGH PICC
     Route: 042
     Dates: start: 20170427
  9. SYNTHAMIN [Suspect]
     Active Substance: AMINO ACIDS
     Dosage: THROUGH PICC, SYNTHAMIN W/O ELE 10% 3L
     Route: 042
     Dates: start: 20170427
  10. SODIUM GLYCEROPHOSPHATE [Suspect]
     Active Substance: SODIUM GLYCEROPHOSPHATE
     Indication: PARENTERAL NUTRITION
     Dosage: 21.6% W/V 500 ML; THROUGH PICC
     Route: 042
  11. VITALIPID [Suspect]
     Active Substance: ERGOCALCIFEROL\PHYTONADIONE\RETINOL\TOCOPHEROL
     Dosage: THROUGH PICC
     Route: 042
     Dates: start: 20170427
  12. SODIUM CHLORIDE. [Suspect]
     Active Substance: SODIUM CHLORIDE
     Indication: PARENTERAL NUTRITION
     Dosage: 23.4 % W/V; THROUGH PICC
     Route: 042
  13. SODIUM CHLORIDE. [Suspect]
     Active Substance: SODIUM CHLORIDE
     Dosage: 23.4 % W/V; THROUGH PICC
     Route: 042
     Dates: start: 20170427
  14. STERILE WATER FOR INJECTION [Suspect]
     Active Substance: WATER
     Indication: PARENTERAL NUTRITION
     Dosage: WATER FOR INJECTION 3 L, THROUGH PICC
     Route: 042
  15. PEDITRACE [Suspect]
     Active Substance: CUPRIC CHLORIDE\MANGANESE CHLORIDE\POTASSIUM IODIDE\SODIUM FLUORIDE\SODIUM SELENITE\ZINC CHLORIDE
     Indication: PARENTERAL NUTRITION
     Dosage: THROUGH PICC
     Route: 042
  16. PEDITRACE [Suspect]
     Active Substance: CUPRIC CHLORIDE\MANGANESE CHLORIDE\POTASSIUM IODIDE\SODIUM FLUORIDE\SODIUM SELENITE\ZINC CHLORIDE
     Dosage: THROUGH PICC
     Route: 042
     Dates: start: 20170427
  17. SOLUVIT [Suspect]
     Active Substance: VITAMINS
     Dosage: THROUGH PICC
     Route: 042
     Dates: start: 20170427
  18. MAGNESIUM SULFATE. [Suspect]
     Active Substance: MAGNESIUM SULFATE
     Indication: PARENTERAL NUTRITION
     Dosage: 50 %W/V; THROUGH PICC
     Route: 042
  19. CLINOLEIC  20% [Suspect]
     Active Substance: OLIVE OIL\SOYBEAN OIL
     Dosage: THROUGH PICC
     Route: 042
     Dates: start: 20170427
  20. DEXTROSE. [Suspect]
     Active Substance: DEXTROSE
     Indication: PARENTERAL NUTRITION
     Dosage: 55% W/V; THROUGH PICC
     Route: 042
  21. VITALIPID [Suspect]
     Active Substance: ERGOCALCIFEROL\PHYTONADIONE\RETINOL\TOCOPHEROL
     Indication: PARENTERAL NUTRITION
     Dosage: THROUGH PICC
     Route: 042
  22. POTASSIUM CHLORIDE. [Suspect]
     Active Substance: POTASSIUM CHLORIDE
     Dosage: POTASSIUM CHLORIDE 500 ML, THROUGH PICC
     Route: 042
     Dates: start: 20170427
  23. SODIUM GLYCEROPHOSPHATE [Suspect]
     Active Substance: SODIUM GLYCEROPHOSPHATE
     Dosage: 21.6% W/V 500 ML; THROUGH PICC
     Route: 042
     Dates: start: 20170427
  24. MAGNESIUM SULFATE. [Suspect]
     Active Substance: MAGNESIUM SULFATE
     Dosage: 50 %W/V; THROUGH PICC
     Route: 042
     Dates: start: 20170427

REACTIONS (2)
  - Bacteraemia [Recovering/Resolving]
  - Pantoea agglomerans infection [Recovering/Resolving]

NARRATIVE: CASE EVENT DATE: 20170430
